FAERS Safety Report 7782706-X (Version None)
Quarter: 2011Q3

REPORT INFORMATION
  Report Type: 
  Country: None (occurrence: None)
  Receive Date: 20110928
  Receipt Date: 20110923
  Transmission Date: 20111222
  Serious: Yes (Death, Life-Threatening)
  Sender: FDA-Public Use
  Company Number: FR-AMGEN-FRASP2011003513

PATIENT
  Age: 49 Year
  Sex: Male

DRUGS (4)
  1. VECTIBIX [Suspect]
     Indication: BILE DUCT CANCER
     Dosage: 3 MG/KG, UNK
     Route: 042
     Dates: start: 20091105, end: 20101115
  2. PREDNISONE [Concomitant]
     Dosage: 10 MG, QD
  3. MYCOPHENOLATE MOFETIL (CELLCEPT) [Concomitant]
     Dosage: 1 G, QD
  4. AVASTIN [Concomitant]
     Indication: BILE DUCT CANCER
     Dosage: 5 MG/KG, UNK
     Route: 042
     Dates: start: 20100924, end: 20101115

REACTIONS (2)
  - NEPHROTIC SYNDROME [None]
  - NEPHROGENIC ANAEMIA [None]
